FAERS Safety Report 17410556 (Version 1)
Quarter: 2020Q1

REPORT INFORMATION
  Report Type: Spontaneous
  Country: AU (occurrence: AU)
  Receive Date: 20200212
  Receipt Date: 20200212
  Transmission Date: 20200409
  Serious: Yes (Hospitalization, Other)
  Sender: FDA-Public Use
  Company Number: NVSC2020AU035120

PATIENT
  Sex: Male

DRUGS (3)
  1. CYCLOSPORINE. [Suspect]
     Active Substance: CYCLOSPORINE
     Indication: PSORIASIS
     Dosage: UNK
     Route: 065
  2. COSENTYX [Suspect]
     Active Substance: SECUKINUMAB
     Indication: PRODUCT USED FOR UNKNOWN INDICATION
     Route: 065
  3. METHOTREXATE. [Suspect]
     Active Substance: METHOTREXATE
     Indication: PRODUCT USED FOR UNKNOWN INDICATION
     Dosage: UNK
     Route: 065

REACTIONS (19)
  - Spinal pain [Unknown]
  - Malaise [Unknown]
  - Somatic symptom disorder [Unknown]
  - Mobility decreased [Unknown]
  - Discomfort [Unknown]
  - Back pain [Unknown]
  - Psoriatic arthropathy [Unknown]
  - Headache [Unknown]
  - Plantar fasciitis [Unknown]
  - Fatigue [Unknown]
  - Arthritis [Unknown]
  - Renal disorder [Unknown]
  - Weight increased [Unknown]
  - Amnesia [Unknown]
  - Pain [Unknown]
  - Shock [Unknown]
  - Liver disorder [Unknown]
  - Arthralgia [Unknown]
  - Migraine [Unknown]
